FAERS Safety Report 8021333-6 (Version None)
Quarter: 2012Q1

REPORT INFORMATION
  Report Type: 
  Country: None (occurrence: None)
  Receive Date: 20120104
  Receipt Date: 20111222
  Transmission Date: 20120608
  Serious: Yes (Hospitalization)
  Sender: FDA-Public Use
  Company Number: GB-UCBSA-048359

PATIENT
  Age: 29 Year
  Sex: Female

DRUGS (2)
  1. VIMPAT [Suspect]
     Dosage: MORNING AND EVENING
  2. VIMPAT [Suspect]
     Dosage: MORNING AND EVENING

REACTIONS (1)
  - CEREBROVASCULAR ACCIDENT [None]
